FAERS Safety Report 14689833 (Version 1)
Quarter: 2018Q1

REPORT INFORMATION
  Report Type: Spontaneous
  Country: US (occurrence: US)
  Receive Date: 20180328
  Receipt Date: 20180328
  Transmission Date: 20180509
  Serious: No
  Sender: FDA-Public Use
  Company Number: US-SMITH AND NEPHEW, INC-2018SMT00016

PATIENT
  Age: 91 Year
  Sex: Male

DRUGS (3)
  1. COLLAGENASE SANTYL [Suspect]
     Active Substance: COLLAGENASE CLOSTRIDIUM HISTOLYTICUM
     Indication: WOUND
     Dosage: UNK
     Route: 061
     Dates: start: 201801
  2. MEPILEX [Suspect]
     Active Substance: SILICON
     Indication: WOUND
     Dosage: UNK UNK, EVERY 72 HOURS
     Route: 061
     Dates: start: 2017, end: 201801
  3. MEPILEX [Suspect]
     Active Substance: SILICON
     Dosage: UNK
     Route: 061
     Dates: start: 201801

REACTIONS (4)
  - Wound complication [Not Recovered/Not Resolved]
  - Unresponsive to stimuli [Recovering/Resolving]
  - Food refusal [Recovered/Resolved]
  - Somnolence [Recovered/Resolved]

NARRATIVE: CASE EVENT DATE: 201801
